FAERS Safety Report 24298652 (Version 1)
Quarter: 2024Q3

REPORT INFORMATION
  Report Type: Spontaneous
  Country: US (occurrence: US)
  Receive Date: 20240909
  Receipt Date: 20240909
  Transmission Date: 20241017
  Serious: Yes (Life-Threatening, Hospitalization, Other)
  Sender: ALKEM
  Company Number: US-ALKEM LABORATORIES LIMITED-US-ALKEM-2024-20449

PATIENT
  Age: 30 Year
  Sex: Male

DRUGS (3)
  1. AMLODIPINE BESYLATE [Suspect]
     Active Substance: AMLODIPINE BESYLATE
     Indication: Product used for unknown indication
     Dosage: 450 MILLIGRAM (24 HOURS PRIOR TO ARRIVAL)
     Route: 065
  2. INSULIN NOS [Suspect]
     Active Substance: INSULIN NOS
     Indication: Metabolic acidosis
     Dosage: UNK
     Route: 065
  3. VASOPRESSIN [Suspect]
     Active Substance: VASOPRESSIN
     Indication: Shock
     Dosage: UNK
     Route: 065

REACTIONS (8)
  - Shock [Unknown]
  - Suicide attempt [Unknown]
  - Mental status changes [Unknown]
  - Acute kidney injury [Recovering/Resolving]
  - Overdose [Unknown]
  - Vomiting [Unknown]
  - Blood lactic acid increased [Unknown]
  - Metabolic acidosis [Recovering/Resolving]
